FAERS Safety Report 8840699 (Version 1)
Quarter: 2012Q4

REPORT INFORMATION
  Report Type: 
  Country: US (occurrence: US)
  Receive Date: 20121015
  Receipt Date: 20121015
  Transmission Date: 20130627
  Serious: Yes (Other)
  Sender: FDA-Public Use
  Company Number: US-ROCHE-1141142

PATIENT
  Sex: Male

DRUGS (2)
  1. NUTROPIN [Suspect]
     Indication: RENAL TRANSPLANT
  2. NUTROPIN [Suspect]
     Indication: NEPHROPATHY

REACTIONS (1)
  - Renal failure [Unknown]
